FAERS Safety Report 18842550 (Version 2)
Quarter: 2021Q2

REPORT INFORMATION
  Report Type: Spontaneous
  Country: US (occurrence: US)
  Receive Date: 20210203
  Receipt Date: 20210610
  Transmission Date: 20210717
  Serious: No
  Sender: FDA-Public Use
  Company Number: US-GALDERMA-US2020005931

PATIENT
  Age: 51 Year
  Sex: Female

DRUGS (2)
  1. SOOLANTRA [Suspect]
     Active Substance: IVERMECTIN
     Indication: ROSACEA
     Dosage: 1%
     Route: 061
     Dates: start: 20200127, end: 20200130
  2. DOXYCYCLINE. [Concomitant]
     Active Substance: DOXYCYCLINE
     Indication: ROSACEA
     Dosage: 50 MG
     Route: 065
     Dates: start: 202001

REACTIONS (5)
  - Pain of skin [Unknown]
  - Pruritus [Unknown]
  - Poor quality product administered [Recovered/Resolved]
  - Rash [Unknown]
  - Product packaging issue [Recovered/Resolved]

NARRATIVE: CASE EVENT DATE: 202001
